FAERS Safety Report 15115865 (Version 1)
Quarter: 2018Q3

REPORT INFORMATION
  Report Type: Spontaneous
  Country: US (occurrence: US)
  Receive Date: 20180706
  Receipt Date: 20180706
  Transmission Date: 20181010
  Serious: No
  Sender: FDA-Public Use
  Company Number: US-RECKITT BENCKISER HEALTHCARE INT LIMITED-RB-91305-2017

PATIENT

DRUGS (1)
  1. MUCINEX [Suspect]
     Active Substance: GUAIFENESIN
     Indication: SINUSITIS
     Dosage: 1 DF, SINGLE
     Route: 065
     Dates: start: 201705

REACTIONS (1)
  - Sputum discoloured [Unknown]

NARRATIVE: CASE EVENT DATE: 20170516
